FAERS Safety Report 6144050-6 (Version None)
Quarter: 2009Q2

REPORT INFORMATION
  Report Type: 
  Country: None (occurrence: None)
  Receive Date: 20090406
  Receipt Date: 20090401
  Transmission Date: 20091009
  Serious: Yes (Other)
  Sender: FDA-Public Use
  Company Number: US-AMGEN-US311266

PATIENT
  Sex: Female
  Weight: 49.5 kg

DRUGS (10)
  1. ARANESP [Suspect]
     Indication: RENAL FAILURE CHRONIC
     Route: 065
     Dates: start: 20010501, end: 20080701
  2. PROCRIT [Suspect]
     Indication: RENAL FAILURE CHRONIC
     Route: 065
     Dates: start: 20080701, end: 20080701
  3. IRON [Concomitant]
     Route: 065
  4. METOPROLOL [Concomitant]
     Route: 065
     Dates: start: 20050101
  5. HYDRALAZINE HCL [Concomitant]
     Route: 065
     Dates: start: 20050101
  6. NEXIUM [Concomitant]
     Route: 065
     Dates: start: 20010101
  7. HECTORAL [Concomitant]
     Route: 065
     Dates: start: 20030101
  8. NITRODUR II [Concomitant]
     Route: 065
     Dates: start: 20050101
  9. VITAMIN B6 [Concomitant]
     Route: 065
     Dates: start: 20050101
  10. FUROSEMIDE [Concomitant]
     Dates: start: 20010101

REACTIONS (2)
  - APLASIA PURE RED CELL [None]
  - DRUG INEFFECTIVE [None]
